FAERS Safety Report 8252470-9 (Version None)
Quarter: 2012Q2

REPORT INFORMATION
  Report Type: 
  Country: None (occurrence: None)
  Receive Date: 20120402
  Receipt Date: 20110719
  Transmission Date: 20120825
  Serious: No
  Sender: FDA-Public Use
  Company Number: US-ABBOTT-11P-163-0840588-00

PATIENT
  Sex: Male
  Weight: 98.518 kg

DRUGS (8)
  1. CLONIDINE [Concomitant]
     Indication: MUSCLE SPASMS
     Route: 037
  2. OXYCONTIN IR [Concomitant]
     Indication: MUSCLE SPASMS
     Route: 048
  3. BACLOFEN [Concomitant]
     Indication: MUSCLE SPASMS
     Route: 037
  4. ANDROGEL [Suspect]
     Indication: BLOOD TESTOSTERONE DECREASED
     Dosage: 2 PACKETS
     Dates: start: 20110619
  5. DIAZEPAM [Concomitant]
     Indication: MUSCLE SPASMS
     Route: 048
  6. VIAGRA [Concomitant]
     Indication: PRODUCT USED FOR UNKNOWN INDICATION
  7. ANDROGEL [Suspect]
  8. DILAUDID [Concomitant]
     Indication: MUSCLE SPASMS
     Route: 037

REACTIONS (2)
  - WEIGHT DECREASED [None]
  - HYPERHIDROSIS [None]
